FAERS Safety Report 17344973 (Version 2)
Quarter: 2020Q1

REPORT INFORMATION
  Report Type: Spontaneous
  Country: US (occurrence: US)
  Receive Date: 20200129
  Receipt Date: 20200218
  Transmission Date: 20200409
  Serious: Yes (Other)
  Sender: FDA-Public Use
  Company Number: US-PFIZER INC-2020039454

PATIENT
  Age: 59 Year
  Sex: Female
  Weight: 87.9 kg

DRUGS (1)
  1. MERREM [Suspect]
     Active Substance: MEROPENEM
     Dosage: 1 G, 3X/DAY (EVERY 8 HOURS)

REACTIONS (15)
  - Eye disorder [Recovered/Resolved]
  - Poor quality product administered [Unknown]
  - Flushing [Unknown]
  - Erythema [Unknown]
  - Heart rate increased [Unknown]
  - Hypertension [Unknown]
  - Confusional state [Unknown]
  - Feeling hot [Unknown]
  - Troponin increased [Unknown]
  - Chest discomfort [Unknown]
  - Intentional dose omission [Unknown]
  - Speech disorder [Unknown]
  - Feeling abnormal [Unknown]
  - Product physical issue [Unknown]
  - Palpitations [Unknown]
